FAERS Safety Report 13628303 (Version 1)
Quarter: 2017Q2

REPORT INFORMATION
  Report Type: Report from Study
  Country: US (occurrence: US)
  Receive Date: 20170607
  Receipt Date: 20170607
  Transmission Date: 20170830
  Serious: Yes (Other)
  Sender: FDA-Public Use
  Company Number: US-JNJFOC-20170602917

PATIENT
  Age: 7 Year
  Weight: 36.8 kg

DRUGS (5)
  1. BENADRYL [Concomitant]
     Active Substance: DIPHENHYDRAMINE HYDROCHLORIDE
     Route: 048
     Dates: start: 20170208
  2. LIDOCAINE. [Concomitant]
     Active Substance: LIDOCAINE
     Route: 023
     Dates: start: 20170208
  3. REMICADE [Suspect]
     Active Substance: INFLIXIMAB
     Indication: CROHN^S DISEASE
     Route: 042
  4. REMICADE [Suspect]
     Active Substance: INFLIXIMAB
     Indication: CROHN^S DISEASE
     Dosage: IN SODIUM CHLORIDE 0.9 %AT THE INFUSION RATE OF 96.3 AND 133 ML/HR
     Route: 042
     Dates: start: 20170208
  5. SOLU-MEDROL [Concomitant]
     Active Substance: METHYLPREDNISOLONE SODIUM SUCCINATE
     Route: 042
     Dates: start: 20170208

REACTIONS (5)
  - Hand fracture [Unknown]
  - Hypotension [Unknown]
  - Atypical mycobacterial infection [Unknown]
  - Body mass index decreased [Unknown]
  - Adenoidal hypertrophy [Unknown]

NARRATIVE: CASE EVENT DATE: 20111101
